FAERS Safety Report 9998886 (Version 2)
Quarter: 2014Q1

REPORT INFORMATION
  Report Type: Spontaneous
  Country: FR (occurrence: FR)
  Receive Date: 20140312
  Receipt Date: 20140312
  Transmission Date: 20141002
  Serious: Yes (Hospitalization, Disabling)
  Sender: FDA-Public Use
  Company Number: FR-009507513-1311FRA008934

PATIENT
  Age: 24 Year
  Sex: Female

DRUGS (1)
  1. MERCILON [Suspect]
     Indication: PRODUCT USED FOR UNKNOWN INDICATION
     Dosage: 1 DF, QD
     Route: 048
     Dates: start: 2005, end: 20061222

REACTIONS (2)
  - Carotid artery dissection [Recovered/Resolved with Sequelae]
  - Ischaemic stroke [Recovered/Resolved with Sequelae]
